FAERS Safety Report 11148371 (Version 1)
Quarter: 2015Q2

REPORT INFORMATION
  Report Type: Spontaneous
  Country: UA (occurrence: UA)
  Receive Date: 20150529
  Receipt Date: 20150529
  Transmission Date: 20150821
  Serious: Yes (Other)
  Sender: FDA-Public Use
  Company Number: UA-PFIZER INC-2015178432

PATIENT
  Age: 22 Year
  Sex: Female

DRUGS (2)
  1. DOSTINEX [Suspect]
     Active Substance: CABERGOLINE
     Dosage: 0.5 MG, 1X/DAY
     Route: 048
     Dates: start: 20150516, end: 20150519
  2. DOSTINEX [Suspect]
     Active Substance: CABERGOLINE
     Indication: LACTATION INHIBITION THERAPY
     Dosage: 0.25 MG, 2X/DAY
     Route: 048
     Dates: start: 20150514, end: 20150515

REACTIONS (3)
  - Galactostasis [Recovering/Resolving]
  - Drug ineffective [Recovering/Resolving]
  - Back pain [Recovering/Resolving]

NARRATIVE: CASE EVENT DATE: 20150519
